FAERS Safety Report 4471335-1 (Version None)
Quarter: 2004Q4

REPORT INFORMATION
  Report Type: 
  Country: None (occurrence: None)
  Receive Date: 20041006
  Receipt Date: 20040924
  Transmission Date: 20050328
  Serious: Yes (Other)
  Sender: FDA-Public Use
  Company Number: M2004-1413

PATIENT
  Age: 83 Year
  Sex: Male

DRUGS (4)
  1. RIMACTANE [Suspect]
     Dosage: 600 MG/DAY
     Dates: start: 20040930, end: 20021125
  2. ZYVOX [Suspect]
     Dosage: 1.2 G/DAY
     Dates: start: 20020930, end: 20021125
  3. PARACETAMOL [Concomitant]
  4. ACETYLSALICYLIC ACID [Concomitant]

REACTIONS (1)
  - CHONDROCALCINOSIS PYROPHOSPHATE [None]
